FAERS Safety Report 23818645 (Version 1)
Quarter: 2024Q2

REPORT INFORMATION
  Report Type: Spontaneous
  Country: US (occurrence: US)
  Receive Date: 20240506
  Receipt Date: 20240506
  Transmission Date: 20240716
  Serious: No
  Sender: FDA-Public Use
  Company Number: US-UCBSA-2023046692

PATIENT
  Sex: Female

DRUGS (1)
  1. CIMZIA [Suspect]
     Active Substance: CERTOLIZUMAB PEGOL
     Indication: Product used for unknown indication
     Dosage: UNK

REACTIONS (6)
  - Injection site rash [Unknown]
  - Throat irritation [Unknown]
  - Injection site induration [Unknown]
  - Arthralgia [Unknown]
  - Joint swelling [Unknown]
  - Inflammatory marker increased [Unknown]
